FAERS Safety Report 15058967 (Version 1)
Quarter: 2018Q2

REPORT INFORMATION
  Report Type: Spontaneous
  Country: US (occurrence: US)
  Receive Date: 20180605
  Receipt Date: 20180605
  Transmission Date: 20180711
  Serious: Yes (Hospitalization)
  Sender: FDA-Public Use
  Company Number: None

PATIENT
  Age: 52 Year
  Sex: Female
  Weight: 63 kg

DRUGS (13)
  1. RETIN-A [Concomitant]
     Active Substance: TRETINOIN
  2. LISINOPRIL. [Concomitant]
     Active Substance: LISINOPRIL
  3. HYDROCORTISONE. [Concomitant]
     Active Substance: HYDROCORTISONE
  4. CLONAZEPAM. [Concomitant]
     Active Substance: CLONAZEPAM
  5. ZONISAMIDE. [Concomitant]
     Active Substance: ZONISAMIDE
  6. IBUPROFEN. [Concomitant]
     Active Substance: IBUPROFEN
  7. AMOXICILLIN. [Concomitant]
     Active Substance: AMOXICILLIN
  8. MAXALT [Concomitant]
     Active Substance: RIZATRIPTAN BENZOATE
  9. SERTRALINE [Concomitant]
     Active Substance: SERTRALINE HYDROCHLORIDE
  10. BENZOYL-PEROXIDE [Concomitant]
  11. VYVANSE [Suspect]
     Active Substance: LISDEXAMFETAMINE DIMESYLATE
     Indication: INCREASED APPETITE
     Dosage: ?          QUANTITY:1 CAPSULE(S);?
     Route: 048
  12. KETOCONAZOLE. [Concomitant]
     Active Substance: KETOCONAZOLE
  13. TYLENOL EXTRA STRENGTH [Concomitant]
     Active Substance: ACETAMINOPHEN

REACTIONS (10)
  - Panic attack [None]
  - Anxiety [None]
  - Insomnia [None]
  - Nervousness [None]
  - Hallucination, auditory [None]
  - Depression [None]
  - Decreased activity [None]
  - Hyperacusis [None]
  - Agitation [None]
  - Drug ineffective [None]

NARRATIVE: CASE EVENT DATE: 20170203
